FAERS Safety Report 4939807-0 (Version None)
Quarter: 2006Q1

REPORT INFORMATION
  Report Type: 
  Country: None (occurrence: None)
  Receive Date: 20060310
  Receipt Date: 20060217
  Transmission Date: 20060701
  Serious: Yes (Disabling)
  Sender: FDA-Public Use
  Company Number: US-MERCK-0602USA04832

PATIENT
  Age: 38 Year
  Sex: Female
  Weight: 102 kg

DRUGS (2)
  1. CELEBREX [Concomitant]
     Route: 065
  2. VIOXX [Suspect]
     Indication: FIBROMYALGIA
     Route: 048
     Dates: start: 20000101, end: 20040101

REACTIONS (3)
  - EMOTIONAL DISTRESS [None]
  - FIBROMYALGIA [None]
  - OVERDOSE [None]
